FAERS Safety Report 8337121-7 (Version None)
Quarter: 2012Q2

REPORT INFORMATION
  Report Type: 
  Country: None (occurrence: None)
  Receive Date: 20120504
  Receipt Date: 20120430
  Transmission Date: 20120825
  Serious: Yes (Death, Other)
  Sender: FDA-Public Use
  Company Number: PHHY2012DE037662

PATIENT
  Sex: Male
  Weight: 94 kg

DRUGS (6)
  1. RASILEZ [Suspect]
     Dosage: 300 MG, QD
     Route: 048
     Dates: start: 20100421
  2. PLATELET AGGREGATION INHIBITORS [Concomitant]
  3. RASILEZ [Suspect]
     Indication: HYPERTENSION
     Dosage: 150 MG, QD
     Route: 048
     Dates: start: 20081208, end: 20100421
  4. ANTIDEPRESSANTS [Concomitant]
  5. DIOVAN [Suspect]
     Indication: HYPERTENSION
     Dosage: 160 MG, QD
     Route: 048
     Dates: start: 20090917
  6. TORSEMIDE [Concomitant]
     Dates: start: 20090917

REACTIONS (2)
  - COMPLETED SUICIDE [None]
  - DEPRESSION [None]
